FAERS Safety Report 10651925 (Version 5)
Quarter: 2015Q1

REPORT INFORMATION
  Report Type: Report from Study
  Country: BR (occurrence: BR)
  Receive Date: 20141215
  Receipt Date: 20150206
  Transmission Date: 20150720
  Serious: Yes (Hospitalization)
  Sender: FDA-Public Use
  Company Number: BR-BAYER-2014-177287

PATIENT
  Age: 60 Year
  Sex: Male

DRUGS (2)
  1. RADIUM-223 DICHLORIDE [Suspect]
     Active Substance: RADIUM RA-223 DICHLORIDE
     Indication: PROSTATE CANCER
     Dosage: UNK
     Route: 042
     Dates: start: 20140905, end: 20140905
  2. RADIUM-223 DICHLORIDE [Suspect]
     Active Substance: RADIUM RA-223 DICHLORIDE
     Indication: PROSTATE CANCER
     Dosage: UNK
     Route: 042
     Dates: start: 20141003, end: 20141003

REACTIONS (9)
  - Generalised oedema [Not Recovered/Not Resolved]
  - Ascites [Recovered/Resolved]
  - Liver disorder [Not Recovered/Not Resolved]
  - Thrombocytopenia [Recovered/Resolved]
  - Pleural effusion [Not Recovered/Not Resolved]
  - Hepatic function abnormal [Not Recovered/Not Resolved]
  - Metastases to liver [Not Recovered/Not Resolved]
  - Pleural effusion [Recovered/Resolved]
  - Pyrexia [Not Recovered/Not Resolved]

NARRATIVE: CASE EVENT DATE: 20141117
